FAERS Safety Report 16189800 (Version 3)
Quarter: 2020Q1

REPORT INFORMATION
  Report Type: Spontaneous
  Country: US (occurrence: US)
  Receive Date: 20190412
  Receipt Date: 20200331
  Transmission Date: 20200409
  Serious: Yes (Other)
  Sender: FDA-Public Use
  Company Number: US-PFIZER INC-2019154720

PATIENT
  Age: 77 Year
  Sex: Female

DRUGS (20)
  1. NEXIUM [Suspect]
     Active Substance: ESOMEPRAZOLE MAGNESIUM
     Indication: GASTROOESOPHAGEAL REFLUX DISEASE
     Dosage: 20 MG, UNK
     Dates: start: 1998, end: 2002
  2. TUMS [Concomitant]
     Active Substance: CALCIUM CARBONATE
     Indication: ANTACID THERAPY
     Dosage: 1-2 TABLETS, AS NEEDED
  3. OMEPRAZOLE. [Suspect]
     Active Substance: OMEPRAZOLE
     Indication: GASTROOESOPHAGEAL REFLUX DISEASE
     Dosage: 20 MG, UNK
     Dates: start: 2008, end: 2018
  4. RED YEAST RICE [Concomitant]
     Active Substance: DIETARY SUPPLEMENT
     Indication: BLOOD CHOLESTEROL ABNORMAL
     Dosage: UNK, APPROXIMATELY TAKEN FOR 10 YEARS
  5. FLAXSEED [Concomitant]
     Active Substance: FLAX SEED
     Dosage: UNK, APPROXIMATELY TAKEN FOR 10 YEARS
  6. PRILOSEC OTC [Suspect]
     Active Substance: OMEPRAZOLE MAGNESIUM
     Indication: GASTROOESOPHAGEAL REFLUX DISEASE
     Dosage: 20 MG, UNK
     Dates: start: 2012, end: 2014
  7. COENZYME Q10 [Concomitant]
     Active Substance: UBIDECARENONE
     Indication: BLOOD CHOLESTEROL ABNORMAL
     Dosage: UNK, APPROXIMATELY TAKEN FOR 10 YEARS
  8. BABY ASPIRIN [Concomitant]
     Active Substance: ASPIRIN
     Indication: CARDIAC DISORDER
     Dosage: UNK, APPROXIMATELY TAKEN FOR 10 YEARS
  9. CALCIUM [Concomitant]
     Active Substance: CALCIUM
     Indication: MINERAL SUPPLEMENTATION
     Dosage: UNK, APPROXIMATELY TAKEN FOR 10 YEARS
  10. ZANTAC 150 (RANITIDINE HYDROCHLORIDE) [Concomitant]
     Active Substance: RANITIDINE HYDROCHLORIDE
     Dosage: UNK
  11. NEXIUM [Suspect]
     Active Substance: ESOMEPRAZOLE MAGNESIUM
     Dosage: UNK
     Dates: start: 2006, end: 2016
  12. PROTONIX [Suspect]
     Active Substance: PANTOPRAZOLE SODIUM
     Dosage: UNK
     Dates: start: 2006, end: 2016
  13. TURMERIC [Concomitant]
     Active Substance: HERBALS\TURMERIC
     Indication: INFLAMMATION
     Dosage: UNK, APPROXIMATELY TAKEN FOR 6 MONTHS
  14. DILAUDID [Concomitant]
     Active Substance: HYDROMORPHONE HYDROCHLORIDE
     Indication: PAIN
     Dosage: UNK, AS NEEDED, APPROXIMATELY TAKEN FOR 1 YEAR
  15. PROBIOTIC [Concomitant]
     Active Substance: PROBIOTICS NOS
     Indication: DYSPEPSIA
     Dosage: UNK, APPROXIMATELY TAKEN FOR 9 MONTHS
  16. PEPCID [Concomitant]
     Active Substance: FAMOTIDINE
     Dosage: UNK
  17. PROTONIX [Suspect]
     Active Substance: PANTOPRAZOLE SODIUM
     Indication: GASTROOESOPHAGEAL REFLUX DISEASE
     Dosage: 20 MG, UNK
     Dates: start: 2002, end: 2008
  18. PRILOSEC [Suspect]
     Active Substance: OMEPRAZOLE MAGNESIUM
     Dosage: UNK
     Dates: start: 2006, end: 2016
  19. VITAMIN D3 [Concomitant]
     Active Substance: CHOLECALCIFEROL
     Dosage: UNK, APPROXIMATELY TAKEN FOR 2 YEARS
  20. VITAMIN C [Concomitant]
     Active Substance: ASCORBIC ACID
     Indication: NASOPHARYNGITIS
     Dosage: UNK, AS NEEDED

REACTIONS (1)
  - Chronic kidney disease [Not Recovered/Not Resolved]

NARRATIVE: CASE EVENT DATE: 2013
